FAERS Safety Report 12462574 (Version 1)
Quarter: 2016Q2

REPORT INFORMATION
  Report Type: Other
  Country: FR (occurrence: FR)
  Receive Date: 20160614
  Receipt Date: 20160614
  Transmission Date: 20160815
  Serious: Yes (Hospitalization)
  Sender: FDA-Public Use
  Company Number: FR-LUPIN PHARMACEUTICALS INC.-2016-01373

PATIENT
  Age: 24 Year
  Sex: Female

DRUGS (2)
  1. ZINC SULFATE [Suspect]
     Active Substance: ZINC SULFATE\ZINC SULFATE ANHYDROUS
     Indication: HEPATO-LENTICULAR DEGENERATION
     Route: 048
  2. DICLOFENAC [Suspect]
     Active Substance: DICLOFENAC
     Indication: BACK PAIN
     Dosage: TWO DICLOFENAC DOSAGE FORM OVER THE LAST DAY
     Route: 065

REACTIONS (1)
  - Gastric ulcer perforation [Recovered/Resolved]
